FAERS Safety Report 9268587 (Version 1)
Quarter: 2013Q2

REPORT INFORMATION
  Report Type: Spontaneous
  Country: US (occurrence: US)
  Receive Date: 20130502
  Receipt Date: 20130502
  Transmission Date: 20140414
  Serious: Yes (Death)
  Sender: FDA-Public Use
  Company Number: US-TEVA-401338USA

PATIENT
  Sex: Male

DRUGS (9)
  1. TREANDA [Suspect]
     Dates: start: 20130220
  2. TREANDA [Suspect]
     Dates: start: 20130313
  3. DEXAMETHASONE [Concomitant]
     Route: 048
  4. ATENOLOL [Concomitant]
     Indication: HYPERTENSION
     Route: 048
  5. DULOXETINE [Concomitant]
     Indication: DEPRESSION
  6. OXYCODONE [Concomitant]
     Indication: PAIN
  7. ZOFRAN [Concomitant]
     Indication: NAUSEA
     Route: 048
  8. NYSTATIN [Concomitant]
     Indication: FUNGAL INFECTION
     Route: 048
  9. POLYETHYLENE GLYCOL [Concomitant]
     Indication: DIARRHOEA
     Route: 048

REACTIONS (2)
  - Prostate cancer [Fatal]
  - Off label use [Unknown]
